FAERS Safety Report 8134240-5 (Version None)
Quarter: 2012Q1

REPORT INFORMATION
  Report Type: 
  Country: None (occurrence: None)
  Receive Date: 20120209
  Receipt Date: 20120130
  Transmission Date: 20120608
  Serious: Yes (Other)
  Sender: FDA-Public Use
  Company Number: USA/USA/12/0022948

PATIENT
  Age: 58 Year
  Sex: Male

DRUGS (2)
  1. TACROLIMUS [Suspect]
     Indication: IMMUNOSUPPRESSANT DRUG THERAPY
  2. MYCOPHENOLATE MOFETIL [Suspect]
     Indication: IMMUNOSUPPRESSANT DRUG THERAPY

REACTIONS (6)
  - BLOOD GLUCOSE INCREASED [None]
  - CHOLELITHIASIS [None]
  - PANCREATIC CARCINOMA [None]
  - WEIGHT DECREASED [None]
  - CACHEXIA [None]
  - BILE DUCT STONE [None]
